FAERS Safety Report 10544292 (Version 1)
Quarter: 2014Q4

REPORT INFORMATION
  Report Type: Spontaneous
  Country: US (occurrence: None)
  Receive Date: 20141010
  Receipt Date: 20141010
  Transmission Date: 20150529
  Serious: No
  Sender: FDA-Public Use
  Company Number: 163-POMAL-14073409

PATIENT
  Age: 84 Year
  Sex: Female
  Weight: 64.41 kg

DRUGS (4)
  1. ECO VITAMIN (TOCOPHEROL) [Concomitant]
  2. POMALYST [Suspect]
     Active Substance: POMALIDOMIDE
     Indication: PLASMA CELL MYELOMA
     Route: 048
     Dates: start: 20140714
  3. XANAX [Concomitant]
     Active Substance: ALPRAZOLAM
  4. DEXAMETHASONE. [Concomitant]
     Active Substance: DEXAMETHASONE

REACTIONS (4)
  - Nervousness [None]
  - Weight decreased [None]
  - Asthenia [None]
  - Dyspepsia [None]

NARRATIVE: CASE EVENT DATE: 201407
